FAERS Safety Report 6955146-0 (Version None)
Quarter: 2010Q3

REPORT INFORMATION
  Report Type: 
  Country: None (occurrence: None)
  Receive Date: 20100830
  Receipt Date: 20100820
  Transmission Date: 20110219
  Serious: Yes (Hospitalization)
  Sender: FDA-Public Use
  Company Number: BR-ASTRAZENECA-2010SE32652

PATIENT
  Age: 46 Year
  Sex: Female
  Weight: 80 kg

DRUGS (16)
  1. SYMBICORT [Suspect]
     Indication: ASTHMA
     Dosage: 160/4.5 MCGS
     Route: 055
     Dates: start: 20060101
  2. ATACAND [Suspect]
     Indication: HYPERTENSION
     Route: 048
     Dates: start: 20020101, end: 20060101
  3. ATACAND [Suspect]
     Route: 048
     Dates: start: 20100301, end: 20100601
  4. SYNTHROID [Concomitant]
     Indication: HYPOTHYROIDISM
     Dosage: OD
     Route: 048
     Dates: start: 20060101
  5. PANTOPRAZOLE [Concomitant]
     Route: 048
     Dates: start: 20060101
  6. CARDIZEM [Concomitant]
     Route: 048
     Dates: start: 20060101
  7. PLAVIX [Concomitant]
     Dosage: OD
     Route: 048
     Dates: start: 20060101
  8. PAROXETINE HCL [Concomitant]
     Indication: ANXIETY
     Dosage: OD
     Route: 048
     Dates: start: 20060101
  9. LEXOTAN [Concomitant]
     Dosage: OD
     Route: 048
     Dates: start: 20060101
  10. LIPITOR [Concomitant]
     Indication: HYPERCHOLESTEROLAEMIA
     Dosage: OD
     Route: 048
     Dates: start: 20060101
  11. ZETIA [Concomitant]
     Indication: HYPERCHOLESTEROLAEMIA
     Dosage: OD
     Route: 048
     Dates: start: 20050101
  12. VITAMIN D [Concomitant]
     Dosage: OD
     Route: 048
     Dates: start: 20060101
  13. L-CARNITINE [Concomitant]
     Indication: MUSCULAR DYSTROPHY
     Dosage: OD
     Route: 048
  14. NAPRIX [Concomitant]
     Indication: HYPERTENSION
     Route: 048
     Dates: start: 20060101
  15. ALDOMET [Concomitant]
     Indication: HYPERTENSION
     Route: 048
     Dates: start: 20060101
  16. NATRILIX SR [Concomitant]
     Indication: HYPERTENSION
     Route: 048
     Dates: start: 20060101

REACTIONS (6)
  - ARTERIAL OCCLUSIVE DISEASE [None]
  - BLOOD PRESSURE INADEQUATELY CONTROLLED [None]
  - CONSTIPATION [None]
  - COUGH [None]
  - DRUG INEFFECTIVE [None]
  - LABYRINTHITIS [None]
